FAERS Safety Report 7524480-8 (Version None)
Quarter: 2011Q2

REPORT INFORMATION
  Report Type: 
  Country: None (occurrence: None)
  Receive Date: 20110525
  Receipt Date: 20110510
  Transmission Date: 20111010
  Serious: Yes (Hospitalization, Other)
  Sender: FDA-Public Use
  Company Number: 2011MA005760

PATIENT
  Age: 22 Year
  Sex: Female

DRUGS (2)
  1. CARBAMAZEPINE [Suspect]
     Dosage: 200 MG;BID
  2. FLUOXETINE HCL [Concomitant]

REACTIONS (11)
  - ILEUS [None]
  - OVARIAN GRANULOSA-THECA CELL TUMOUR [None]
  - PALLOR [None]
  - BLOOD THYROID STIMULATING HORMONE INCREASED [None]
  - OVARIAN MASS [None]
  - SMALL INTESTINAL OBSTRUCTION [None]
  - EMOTIONAL DISTRESS [None]
  - PLEURAL EFFUSION [None]
  - HAEMOGLOBIN DECREASED [None]
  - THYROXINE FREE DECREASED [None]
  - PERITONITIS SCLEROSING [None]
